FAERS Safety Report 9678390 (Version 4)
Quarter: 2014Q4

REPORT INFORMATION
  Report Type: Spontaneous
  Country: JP (occurrence: None)
  Receive Date: 20131106
  Receipt Date: 20141205
  Transmission Date: 20150529
  Serious: Yes (Hospitalization, Other)
  Sender: FDA-Public Use
  Company Number: 2010JP006029

PATIENT
  Age: 41 Year
  Sex: Female
  Weight: 40 kg

DRUGS (17)
  1. ARTIST (CARVEDILOL) TABLET [Concomitant]
  2. ASPENON (APRINDINE HYDROCHLORIDE) [Concomitant]
  3. DIART (AZOSEMIDE) [Concomitant]
  4. ACTONIEL (SODIUM RISEDRONATE HYDRATE) TABLET [Concomitant]
  5. FOSAMAC(ALENDRONATE SODIUM) TABLET [Concomitant]
  6. PROGRAF [Suspect]
     Active Substance: TACROLIMUS\TACROLIMUS ANHYDROUS
     Indication: LUPUS NEPHRITIS
     Route: 048
     Dates: start: 20081001, end: 20081014
  7. ADALAT [Suspect]
     Active Substance: NIFEDIPINE
     Indication: PRODUCT USED FOR UNKNOWN INDICATION
     Route: 048
     Dates: start: 20081015, end: 20130327
  8. FERROMIA (SODIUM FERROUS CITRATE) [Concomitant]
  9. CALBLOCK (AZELNIDIPINE) TABLET [Concomitant]
  10. TAKEPRON (LANSOPRAZOLE) TABLET [Concomitant]
     Active Substance: LANSOPRAZOLE
  11. DORNER (BERAPROST SODIUM) TABLET [Concomitant]
  12. DIOVAN (VALSARTAN) TABLET [Concomitant]
  13. BAYASPIRIN (ACETYLSALICYLIC ACID) (ACETYLSALICYLIC ACID) [Concomitant]
     Active Substance: ASPIRIN
  14. GLAKAY(MENATETRENONE) [Concomitant]
  15. MEVALOTIN(PRVASTATIN SODIUM) [Concomitant]
  16. PREDONINE [Suspect]
     Active Substance: PREDNISOLONE\PREDNISOLONE ACETATE\PREDNISOLONE SODIUM SUCCINATE
     Indication: LUPUS NEPHRITIS
     Dosage: 7 MG, ONCE DAILY, ORAL
     Route: 048
     Dates: end: 20081014
  17. GASTER D (FAMOTIDINE) ORODISPERSIBLE TABLET [Concomitant]

REACTIONS (9)
  - Metrorrhagia [None]
  - Raynaud^s phenomenon [None]
  - Cardiac failure chronic [None]
  - Vascular skin disorder [None]
  - Oedema peripheral [None]
  - Ventricular extrasystoles [None]
  - Cerebral infarction [None]
  - Adenomyosis [None]
  - Endometrial hypertrophy [None]

NARRATIVE: CASE EVENT DATE: 20100809
